FAERS Safety Report 7376571-2 (Version None)
Quarter: 2011Q1

REPORT INFORMATION
  Report Type: 
  Country: None (occurrence: None)
  Receive Date: 20110325
  Receipt Date: 20110317
  Transmission Date: 20110831
  Serious: Yes (Other)
  Sender: FDA-Public Use
  Company Number: US-GENENTECH-314192

PATIENT
  Sex: Male
  Weight: 37.8 kg

DRUGS (2)
  1. NUTROPIN AQ [Suspect]
     Indication: SMALL FOR DATES BABY
  2. NUTROPIN AQ [Suspect]
     Indication: GROWTH RETARDATION
     Dosage: 2.8 MG, QDX6D/WK
     Route: 058
     Dates: start: 20100307

REACTIONS (1)
  - LOCAL SWELLING [None]
